FAERS Safety Report 10068652 (Version 1)
Quarter: 2014Q2

REPORT INFORMATION
  Report Type: Spontaneous
  Country: ZA (occurrence: ZA)
  Receive Date: 20140409
  Receipt Date: 20140409
  Transmission Date: 20141212
  Serious: Yes (Life-Threatening)
  Sender: FDA-Public Use
  Company Number: ZA-GLAXOSMITHKLINE-B0984313A

PATIENT
  Age: 51 Year
  Sex: Male

DRUGS (4)
  1. LAMICTIN [Suspect]
     Indication: BIPOLAR DISORDER
     Dosage: 200MG PER DAY
     Route: 048
  2. DULOXETINE [Concomitant]
     Dosage: 30MG PER DAY
  3. ZOPICLONE [Concomitant]
  4. SEROQUEL [Concomitant]
     Dosage: 50MG PER DAY

REACTIONS (1)
  - Renal impairment [Unknown]
